FAERS Safety Report 7941316-1 (Version None)
Quarter: 2011Q4

REPORT INFORMATION
  Report Type: 
  Country: None (occurrence: None)
  Receive Date: 20111128
  Receipt Date: 20111116
  Transmission Date: 20120403
  Serious: Yes (Hospitalization, Other)
  Sender: FDA-Public Use
  Company Number: FR-JNJFOC-20111109186

PATIENT
  Sex: Male

DRUGS (7)
  1. TOPIRAMATE [Suspect]
     Route: 048
     Dates: start: 20110824, end: 20110829
  2. ZOLPIDEM TARTRATE [Concomitant]
     Indication: PRODUCT USED FOR UNKNOWN INDICATION
     Route: 048
  3. TOPIRAMATE [Suspect]
     Dosage: 25-0-25
     Route: 048
     Dates: start: 20100215
  4. ACETAMINOPHEN [Concomitant]
     Indication: PRODUCT USED FOR UNKNOWN INDICATION
     Route: 040
  5. SUMATRIPTAN [Concomitant]
     Indication: PRODUCT USED FOR UNKNOWN INDICATION
     Dosage: 1 TO 2 INJECTIONS PER DAY DEPENDING ON NEED
     Route: 058
  6. TOPIRAMATE [Suspect]
     Indication: EPILEPSY
     Route: 048
  7. ISOPTIN [Concomitant]
     Indication: PRODUCT USED FOR UNKNOWN INDICATION
     Route: 048

REACTIONS (4)
  - COGNITIVE DISORDER [None]
  - EPILEPSY [None]
  - DRUG INTOLERANCE [None]
  - VISION BLURRED [None]
